FAERS Safety Report 4734513-X (Version None)
Quarter: 2005Q3

REPORT INFORMATION
  Report Type: 
  Country: None (occurrence: None)
  Receive Date: 20050721
  Receipt Date: 20050419
  Transmission Date: 20060218
  Serious: No
  Sender: FDA-Public Use
  Company Number: 2005SP000248

PATIENT
  Age: 55 Year
  Sex: Male
  Weight: 102.0593 kg

DRUGS (2)
  1. LUNESTA [Suspect]
     Indication: INSOMNIA
     Dosage: 3 MG; UNKNOWN; ORAL
     Route: 048
     Dates: start: 20050418
  2. ASPIRIN [Concomitant]

REACTIONS (3)
  - DYSGEUSIA [None]
  - FEELING JITTERY [None]
  - HEADACHE [None]
